FAERS Safety Report 8429031-1 (Version None)
Quarter: 2012Q2

REPORT INFORMATION
  Report Type: 
  Country: None (occurrence: None)
  Receive Date: 20120612
  Receipt Date: 20120604
  Transmission Date: 20120825
  Serious: Yes (Hospitalization)
  Sender: FDA-Public Use
  Company Number: US-BAYER-2012-001341

PATIENT
  Age: 46 Year
  Sex: Female
  Weight: 69.388 kg

DRUGS (6)
  1. TREXIMET [Concomitant]
     Indication: MIGRAINE
     Dosage: 85MG/ 500MG PRN
     Route: 048
  2. LEXAPRO [Concomitant]
     Dosage: 10 MG, UNK
     Route: 048
  3. AMOXICILLIN [Concomitant]
     Dosage: 500 MG, UNK
     Route: 048
  4. ACETAMINOPHEN AND HYDROCODONE BITARTRATE [Concomitant]
     Dosage: 5 MG/500 MG
     Route: 048
  5. DROSPIRENONE AND ETHINYL ESTRADIOL [Suspect]
     Indication: PREMENSTRUAL SYNDROME
     Dosage: UNK
     Dates: start: 20080901, end: 20090101
  6. ATIVAN [Concomitant]
     Dosage: UNK UNK, PRN
     Route: 048

REACTIONS (4)
  - PULMONARY EMBOLISM [None]
  - PAIN [None]
  - DEEP VEIN THROMBOSIS [None]
  - INJURY [None]
